FAERS Safety Report 11672186 (Version 3)
Quarter: 2019Q3

REPORT INFORMATION
  Report Type: Report from Study
  Country: US (occurrence: US)
  Receive Date: 20151028
  Receipt Date: 20190911
  Transmission Date: 20191004
  Serious: No
  Sender: FDA-Public Use
  Company Number: US-ALEXION-A201504019

PATIENT
  Sex: Male

DRUGS (2)
  1. SOLIRIS [Suspect]
     Active Substance: ECULIZUMAB
     Indication: ATYPICAL HAEMOLYTIC URAEMIC SYNDROME
     Dosage: 4 VIALS
     Route: 042
     Dates: start: 20151011
  2. SOLIRIS [Suspect]
     Active Substance: ECULIZUMAB
     Dosage: 3 VIALS
     Route: 042
     Dates: start: 20151012

REACTIONS (4)
  - Complement factor increased [Unknown]
  - Inappropriate schedule of product administration [Unknown]
  - Vein disorder [Unknown]
  - Poor venous access [Unknown]

NARRATIVE: CASE EVENT DATE: 201510
